FAERS Safety Report 17166994 (Version 3)
Quarter: 2020Q4

REPORT INFORMATION
  Report Type: Report from Study
  Country: US (occurrence: US)
  Receive Date: 20191217
  Receipt Date: 20201121
  Transmission Date: 20210113
  Serious: No
  Sender: FDA-Public Use
  Company Number: NVSC2019US014676

PATIENT
  Sex: Male

DRUGS (1)
  1. GLEEVEC [Suspect]
     Active Substance: IMATINIB MESYLATE
     Indication: PRODUCT USED FOR UNKNOWN INDICATION
     Dosage: 400 MG, QD (ONCE DAILY)
     Route: 048
     Dates: start: 20190606

REACTIONS (5)
  - Fatigue [Unknown]
  - Acne [Unknown]
  - Pruritus [Unknown]
  - Diarrhoea [Unknown]
  - Irritable bowel syndrome [Unknown]
